FAERS Safety Report 13540338 (Version 1)
Quarter: 2017Q2

REPORT INFORMATION
  Report Type: Spontaneous
  Country: US (occurrence: US)
  Receive Date: 20170512
  Receipt Date: 20170512
  Transmission Date: 20170830
  Serious: Yes (Hospitalization)
  Sender: FDA-Public Use
  Company Number: US-MYLANLABS-2017M1028059

PATIENT

DRUGS (1)
  1. MINOCYCLINE [Suspect]
     Active Substance: MINOCYCLINE\MINOCYCLINE HYDROCHLORIDE
     Indication: GINGIVITIS
     Dosage: INJECTED BOTH ABOVE AND BELOW THE GUM LINE
     Route: 004

REACTIONS (1)
  - Abscess oral [Recovering/Resolving]
